FAERS Safety Report 19920669 (Version 2)
Quarter: 2023Q4

REPORT INFORMATION
  Report Type: Other
  Country: IT (occurrence: None)
  Receive Date: 20211006
  Receipt Date: 20231207
  Transmission Date: 20240109
  Serious: Yes (Other)
  Sender: FDA-Public Use
  Company Number: IT-NIVAGEN-000005

PATIENT
  Age: 59 Year
  Sex: Female

DRUGS (1)
  1. DECITABINE [Suspect]
     Active Substance: DECITABINE
     Indication: Acute myeloid leukaemia refractory
     Dosage: 3 CYCLES OF DECITABINE 20 MG/MQ INTRAVENOUSLY PER DAY ON DAYS 1-5, OF A 4-5 WEEK INTERVAL.
     Route: 042

REACTIONS (6)
  - Leukaemia recurrent [Unknown]
  - Disease progression [Unknown]
  - Neutropenia [Unknown]
  - Thrombocytopenia [Unknown]
  - Chronic graft versus host disease [Unknown]
  - Infection [Unknown]
